FAERS Safety Report 9265130 (Version 1)
Quarter: 2013Q2

REPORT INFORMATION
  Report Type: Spontaneous
  Country: US (occurrence: US)
  Receive Date: 20130501
  Receipt Date: 20130501
  Transmission Date: 20140414
  Serious: No
  Sender: FDA-Public Use
  Company Number: US-PFIZER INC-2013129952

PATIENT
  Age: 56 Year
  Sex: Male

DRUGS (1)
  1. SUTENT [Suspect]
     Dosage: 50 MG, UNK
     Dates: start: 20130413

REACTIONS (3)
  - Diarrhoea [Unknown]
  - Blister [Unknown]
  - Dysgeusia [Unknown]
